FAERS Safety Report 8037850-9 (Version None)
Quarter: 2012Q1

REPORT INFORMATION
  Report Type: 
  Country: None (occurrence: None)
  Receive Date: 20120105
  Receipt Date: 20111228
  Transmission Date: 20120608
  Serious: Yes (Hospitalization, Other)
  Sender: FDA-Public Use
  Company Number: 2011SP025614

PATIENT
  Age: 31 Year
  Sex: Female
  Weight: 61.2356 kg

DRUGS (1)
  1. NUVARING [Suspect]
     Indication: MENSTRUATION IRREGULAR
     Dates: start: 20090518, end: 20090601

REACTIONS (18)
  - MICROCYTIC ANAEMIA [None]
  - ANXIETY [None]
  - MYALGIA [None]
  - SMALL INTESTINAL OBSTRUCTION [None]
  - PULMONARY EMBOLISM [None]
  - DYSPEPSIA [None]
  - PARAESTHESIA [None]
  - DEEP VEIN THROMBOSIS [None]
  - WHITE BLOOD CELL COUNT INCREASED [None]
  - CONSTIPATION [None]
  - GASTROINTESTINAL INFECTION [None]
  - FOOD CRAVING [None]
  - PAIN [None]
  - IRON DEFICIENCY [None]
  - DRUG INTOLERANCE [None]
  - DRUG HYPERSENSITIVITY [None]
  - WEIGHT DECREASED [None]
  - LEUKOPENIA [None]
